FAERS Safety Report 24571231 (Version 9)
Quarter: 2025Q4

REPORT INFORMATION
  Report Type: Report from Study
  Country: US (occurrence: US)
  Receive Date: 20241101
  Receipt Date: 20251103
  Transmission Date: 20260118
  Serious: Yes (Other)
  Sender: UCB
  Company Number: US-UCBSA-2024055946

PATIENT
  Age: 14 Year
  Weight: 76.2 kg

DRUGS (22)
  1. FENFLURAMINE [Suspect]
     Active Substance: FENFLURAMINE
     Indication: Severe myoclonic epilepsy of infancy
     Dosage: 4.5 MILLILITER, 2X/DAY (BID)
  2. FENFLURAMINE [Suspect]
     Active Substance: FENFLURAMINE
     Indication: Seizure
     Dosage: 4.5 MILLILITER, 2X/DAY (BID)
  3. FENFLURAMINE [Suspect]
     Active Substance: FENFLURAMINE
     Dosage: 0.3 MG/KG/DAY
  4. FENFLURAMINE [Suspect]
     Active Substance: FENFLURAMINE
     Dosage: 0.19 MILLIGRAM/KILOGRAM/DAY (20 MILLIGRAM/DAY)
  5. VIMPAT [Suspect]
     Active Substance: LACOSAMIDE
     Indication: Severe myoclonic epilepsy of infancy
     Dosage: 20 MILLILITER, 2X/DAY (BID), SOLUTION
  6. NAYZILAM [Suspect]
     Active Substance: MIDAZOLAM
     Indication: Seizure
     Dosage: 2 DOSAGE PER DAY AS NEEDED
  7. onti [Concomitant]
     Indication: Severe myoclonic epilepsy of infancy
     Dosage: 8 MILLILITER, 2X/DAY (BID)
  8. LAMICTAL [Concomitant]
     Active Substance: LAMOTRIGINE
     Indication: Severe myoclonic epilepsy of infancy
     Dosage: 100 MILLIGRAM, 2X/DAY (BID)
  9. EPIDIOLEX [Concomitant]
     Active Substance: CANNABIDIOL
     Indication: Severe myoclonic epilepsy of infancy
     Dosage: 5.7 MILLILITER, 2X/DAY (BID)
  10. fulloxetine [Concomitant]
     Indication: Product used for unknown indication
     Dosage: 10 MILLIGRAM, ONCE DAILY (QD)
  11. flutisone [Concomitant]
     Indication: Product used for unknown indication
     Dosage: 50 MICROGRAM
  12. ZIPRASIDONE [Concomitant]
     Active Substance: ZIPRASIDONE
     Indication: Product used for unknown indication
     Dosage: 20 MILLIGRAM, 2X/DAY (BID)
  13. BENZTROPINE [Concomitant]
     Active Substance: BENZTROPINE
     Indication: Product used for unknown indication
     Dosage: 150 MILLIGRAM, 3X/DAY (TID)
  14. GUANFACINE [Concomitant]
     Active Substance: GUANFACINE
     Indication: Product used for unknown indication
     Dosage: 4 MILLIGRAM, 2X/2 DAYS
  15. HYDROXYZINE [Concomitant]
     Active Substance: HYDROXYZINE HYDROCHLORIDE
     Indication: Product used for unknown indication
     Dosage: 10 MILLILITER
  16. metanin [Concomitant]
     Indication: Product used for unknown indication
     Dosage: UNK
  17. az [Concomitant]
     Indication: Product used for unknown indication
     Dosage: 200 MILLIGRAM
  18. DIPHENHYDRAMINE [Concomitant]
     Active Substance: DIPHENHYDRAMINE
     Indication: Product used for unknown indication
     Dosage: 12.5 MILLIGRAM
  19. LEXAPRO [Concomitant]
     Active Substance: ESCITALOPRAM OXALATE
     Indication: Product used for unknown indication
  20. LAMOTRIGINE [Concomitant]
     Active Substance: LAMOTRIGINE
     Indication: Product used for unknown indication
     Dosage: 100 MILLIGRAM, 2X/DAY (BID)
  21. ESCITALOPRAM [Concomitant]
     Active Substance: ESCITALOPRAM OXALATE
     Indication: Product used for unknown indication
     Dosage: 1 TAB 5 MG ONE TIME EACH DAY
  22. NYSTATIN [Concomitant]
     Active Substance: NYSTATIN
     Indication: Product used for unknown indication
     Dosage: 30 G

REACTIONS (12)
  - Seizure [Unknown]
  - Generalised tonic-clonic seizure [Recovering/Resolving]
  - Medical device battery replacement [Not Recovered/Not Resolved]
  - Insomnia [Not Recovered/Not Resolved]
  - Anxiety [Not Recovered/Not Resolved]
  - Affective disorder [Unknown]
  - Sleep disorder [Recovering/Resolving]
  - Aggression [Unknown]
  - Anger [Unknown]
  - Discomfort [Unknown]
  - Product dose omission issue [Unknown]
  - Refusal of treatment by patient [Unknown]
